FAERS Safety Report 13821529 (Version 2)
Quarter: 2017Q3

REPORT INFORMATION
  Report Type: Spontaneous
  Country: KR (occurrence: KR)
  Receive Date: 20170801
  Receipt Date: 20170823
  Transmission Date: 20171127
  Serious: Yes (Other)
  Sender: FDA-Public Use
  Company Number: KR-009507513-1703KOR000862

PATIENT
  Age: 69 Year
  Sex: Male
  Weight: 75 kg

DRUGS (49)
  1. CISPLATIN. [Concomitant]
     Active Substance: CISPLATIN
     Dosage: 126 MG, ONCE; CYCLE 2
     Route: 042
     Dates: start: 20161117, end: 20161117
  2. DEXAMETHASONE SODIUM PHOSPHATE. [Concomitant]
     Active Substance: DEXAMETHASONE SODIUM PHOSPHATE
     Dosage: 2.5 MG, QD
     Route: 042
     Dates: start: 20161105, end: 20161109
  3. LASIX [Concomitant]
     Active Substance: FUROSEMIDE
     Dosage: 20 MG, ONCE
     Route: 042
     Dates: start: 20170209, end: 20170209
  4. CYCIN [Concomitant]
     Indication: PROPHYLAXIS
     Dosage: 500 MG, BID
     Route: 048
     Dates: start: 20161020, end: 20161025
  5. CYCIN [Concomitant]
     Dosage: 500 MG, BID
     Route: 048
     Dates: start: 20161231, end: 20170102
  6. LASTET [Concomitant]
     Active Substance: ETOPOSIDE
     Indication: CHEMOTHERAPY
     Dosage: 180 MG, QD, CYCLE 1
     Route: 042
     Dates: start: 20161020, end: 20161022
  7. LASTET [Concomitant]
     Active Substance: ETOPOSIDE
     Dosage: 180 MG, ONCE, CYCLE 2
     Route: 042
     Dates: start: 20161117, end: 20161117
  8. CISPLATIN. [Concomitant]
     Active Substance: CISPLATIN
     Dosage: 126 MG, ONCE; CYCLE 3
     Route: 042
     Dates: start: 20161215, end: 20161215
  9. DEXAMETHASONE SODIUM PHOSPHATE. [Concomitant]
     Active Substance: DEXAMETHASONE SODIUM PHOSPHATE
     Indication: PROPHYLAXIS OF NAUSEA AND VOMITING
     Dosage: 5 MG, QID
     Route: 042
     Dates: start: 20161020, end: 20161025
  10. DEXAMETHASONE SODIUM PHOSPHATE. [Concomitant]
     Active Substance: DEXAMETHASONE SODIUM PHOSPHATE
     Dosage: 10 MG, QD
     Route: 042
     Dates: start: 20170109, end: 20170111
  11. ALOXI [Concomitant]
     Active Substance: PALONOSETRON HYDROCHLORIDE
     Dosage: 0.25 MG, ONCE
     Route: 042
     Dates: start: 20161215, end: 20161215
  12. DENOGAN [Concomitant]
     Active Substance: PROPACETAMOL HYDROCHLORIDE
     Dosage: 2 G, QD
     Dates: start: 20161031, end: 20161031
  13. DEXAMETHASONE SODIUM PHOSPHATE. [Concomitant]
     Active Substance: DEXAMETHASONE SODIUM PHOSPHATE
     Indication: PROPHYLAXIS OF NAUSEA AND VOMITING
     Dosage: 5 MG, TID
     Route: 042
     Dates: start: 20161026, end: 20161028
  14. DEXAMETHASONE SODIUM PHOSPHATE. [Concomitant]
     Active Substance: DEXAMETHASONE SODIUM PHOSPHATE
     Dosage: 5 MG, QD
     Route: 042
     Dates: start: 20161029, end: 20161104
  15. ALOXI [Concomitant]
     Active Substance: PALONOSETRON HYDROCHLORIDE
     Dosage: 0.25 MG, ONCE
     Route: 042
     Dates: start: 20161117, end: 20161117
  16. LASIX [Concomitant]
     Active Substance: FUROSEMIDE
     Indication: PROPHYLAXIS
     Dosage: 10 MG, QD
     Route: 042
     Dates: start: 20161006, end: 20161015
  17. DICKNOL [Concomitant]
     Dosage: 90 MG, QD
     Route: 030
     Dates: start: 20161016, end: 20161019
  18. EMEND (FOSAPREPITANT DIMEGLUMINE) [Suspect]
     Active Substance: FOSAPREPITANT DIMEGLUMINE
     Dosage: 150 MG, ONCE
     Route: 042
     Dates: start: 20170109, end: 20170109
  19. LASTET [Concomitant]
     Active Substance: ETOPOSIDE
     Dosage: 180 MG, QD, CYCLE 2
     Route: 042
     Dates: start: 20161121, end: 20161122
  20. LASTET [Concomitant]
     Active Substance: ETOPOSIDE
     Dosage: 180 MG, QD, CYCLE 5
     Route: 042
     Dates: start: 20170209, end: 20170211
  21. DEXAMETHASONE SODIUM PHOSPHATE. [Concomitant]
     Active Substance: DEXAMETHASONE SODIUM PHOSPHATE
     Dosage: 10 MG, QD
     Route: 042
     Dates: start: 20161115, end: 20161217
  22. DEXAMETHASONE SODIUM PHOSPHATE. [Concomitant]
     Active Substance: DEXAMETHASONE SODIUM PHOSPHATE
     Dosage: 10 MG, QD
     Route: 042
     Dates: start: 20170209, end: 20170211
  23. EMEND (FOSAPREPITANT DIMEGLUMINE) [Suspect]
     Active Substance: FOSAPREPITANT DIMEGLUMINE
     Indication: PROPHYLAXIS OF NAUSEA AND VOMITING
     Dosage: 150 MG, ONCE
     Route: 042
     Dates: start: 20161020, end: 20161020
  24. EMEND (FOSAPREPITANT DIMEGLUMINE) [Suspect]
     Active Substance: FOSAPREPITANT DIMEGLUMINE
     Dosage: 150 MG, ONCE
     Route: 042
     Dates: start: 20161215, end: 20161215
  25. LASTET [Concomitant]
     Active Substance: ETOPOSIDE
     Dosage: 180 MG, QD, CYCLE 3
     Route: 042
     Dates: start: 20161215, end: 20161217
  26. CISPLATIN. [Concomitant]
     Active Substance: CISPLATIN
     Dosage: 126 MG, ONCE; CYCLE 4
     Route: 042
     Dates: start: 20170109, end: 20170109
  27. CISPLATIN. [Concomitant]
     Active Substance: CISPLATIN
     Dosage: 126 MG, ONCE; CYCLE 5
     Route: 042
     Dates: start: 20170209, end: 20170209
  28. DEXAMETHASONE SODIUM PHOSPHATE. [Concomitant]
     Active Substance: DEXAMETHASONE SODIUM PHOSPHATE
     Dosage: 10 MG, ONCE
     Route: 042
     Dates: start: 20161117, end: 20161117
  29. RISPERIDONE. [Concomitant]
     Active Substance: RISPERIDONE
     Indication: DELIRIUM
     Dosage: 1 TABLET, QD
     Route: 048
  30. EMEND (FOSAPREPITANT DIMEGLUMINE) [Suspect]
     Active Substance: FOSAPREPITANT DIMEGLUMINE
     Dosage: 150 MG, ONCE
     Route: 042
     Dates: start: 20161117, end: 20161117
  31. EMEND (FOSAPREPITANT DIMEGLUMINE) [Suspect]
     Active Substance: FOSAPREPITANT DIMEGLUMINE
     Dosage: 150 MG, ONCE
     Route: 042
     Dates: start: 20170209, end: 20170209
  32. CISPLATIN. [Concomitant]
     Active Substance: CISPLATIN
     Indication: CHEMOTHERAPY
     Dosage: 126 MG, ONCE; CYCLE 1
     Route: 042
     Dates: start: 20161020, end: 20161020
  33. CELEBREX [Concomitant]
     Active Substance: CELECOXIB
     Indication: PAIN
     Dosage: 1 CAPSULE, QD
     Route: 048
     Dates: start: 20161006, end: 20161026
  34. DENOGAN [Concomitant]
     Active Substance: PROPACETAMOL HYDROCHLORIDE
     Dosage: 1 G, ONCE
     Route: 042
     Dates: start: 20161113, end: 20161113
  35. DENOGAN [Concomitant]
     Active Substance: PROPACETAMOL HYDROCHLORIDE
     Dosage: 1 G, ONCE
     Route: 042
     Dates: start: 20161222, end: 20161222
  36. LASIX [Concomitant]
     Active Substance: FUROSEMIDE
     Dosage: 20 MG, ONCE
     Route: 042
     Dates: start: 20170109, end: 20170109
  37. DEXAMETHASONE SODIUM PHOSPHATE. [Concomitant]
     Active Substance: DEXAMETHASONE SODIUM PHOSPHATE
     Dosage: 10 MG, ONCE
     Route: 042
     Dates: start: 20161121, end: 20161121
  38. ALOXI [Concomitant]
     Active Substance: PALONOSETRON HYDROCHLORIDE
     Indication: PROPHYLAXIS OF NAUSEA AND VOMITING
     Dosage: 0.25 MG, ONCE
     Route: 042
     Dates: start: 20161020, end: 20161020
  39. ALOXI [Concomitant]
     Active Substance: PALONOSETRON HYDROCHLORIDE
     Dosage: 0.25 MG, ONCE
     Route: 042
     Dates: start: 20170209, end: 20170209
  40. DENOGAN [Concomitant]
     Active Substance: PROPACETAMOL HYDROCHLORIDE
     Indication: PYREXIA
     Dosage: 2 G, QD
     Route: 042
     Dates: start: 20161006, end: 20161015
  41. LASIX [Concomitant]
     Active Substance: FUROSEMIDE
     Dosage: 20 MG, ONCE
     Route: 042
     Dates: start: 20161117, end: 20161117
  42. LASIX [Concomitant]
     Active Substance: FUROSEMIDE
     Dosage: 20 MG, ONCE
     Route: 042
     Dates: start: 20161215, end: 20161215
  43. SEROQUEL [Concomitant]
     Active Substance: QUETIAPINE FUMARATE
     Indication: DELIRIUM
     Dosage: 1 TABLET, QD
     Route: 048
  44. LASTET [Concomitant]
     Active Substance: ETOPOSIDE
     Dosage: 180 MG, QD, CYCLE 4
     Route: 042
     Dates: start: 20170109, end: 20170111
  45. ALOXI [Concomitant]
     Active Substance: PALONOSETRON HYDROCHLORIDE
     Dosage: 0.25 MG, ONCE
     Route: 042
     Dates: start: 20170109, end: 20170109
  46. DENOGAN [Concomitant]
     Active Substance: PROPACETAMOL HYDROCHLORIDE
     Dosage: 1 G, ONCE
     Route: 042
     Dates: start: 20161104, end: 20161104
  47. LASIX [Concomitant]
     Active Substance: FUROSEMIDE
     Dosage: 20 MG, ONCE
     Route: 042
     Dates: start: 20161020, end: 20161020
  48. TRIDOL (TRAMADOL HYDROCHLORIDE) [Concomitant]
     Indication: PAIN
     Dosage: 50 MG, QD
     Route: 042
     Dates: start: 20161006, end: 20161019
  49. DICKNOL [Concomitant]
     Indication: PAIN
     Dosage: 90 MG, QD
     Route: 030
     Dates: start: 20161007, end: 20161009

REACTIONS (14)
  - Epistaxis [Recovered/Resolved]
  - Pyrexia [Recovered/Resolved]
  - Neutropenia [Recovered/Resolved]
  - Atrial flutter [Recovered/Resolved]
  - Neutropenia [Recovered/Resolved]
  - Neutropenia [Recovered/Resolved]
  - Diarrhoea [Recovered/Resolved]
  - Neutropenia [Recovered/Resolved]
  - Neutropenia [Recovered/Resolved]
  - Nasopharyngitis [Recovered/Resolved]
  - Pyrexia [Recovered/Resolved]
  - Pyrexia [Recovered/Resolved]
  - Pyrexia [Recovered/Resolved]
  - Abdominal pain [Recovered/Resolved]

NARRATIVE: CASE EVENT DATE: 20161028
